FAERS Safety Report 4991221-8 (Version None)
Quarter: 2006Q2

REPORT INFORMATION
  Report Type: 
  Country: None (occurrence: None)
  Receive Date: 20060504
  Receipt Date: 20060425
  Transmission Date: 20061013
  Serious: Yes (Other)
  Sender: FDA-Public Use
  Company Number: US-JNJFOC-20060406044

PATIENT
  Sex: Female
  Weight: 54.43 kg

DRUGS (10)
  1. REMICADE [Suspect]
     Indication: CROHN'S DISEASE
     Dosage: 3 OR 4 INFUSIONS
     Route: 042
  2. PENTASA [Concomitant]
     Indication: CROHN'S DISEASE
     Dosage: 500 MG, 3 IN AM, 2 IN PM
  3. PROTONIX [Concomitant]
  4. SYNTHROID [Concomitant]
  5. ZOLOFT [Concomitant]
     Indication: DEPRESSION
  6. TRAZODONE HCL [Concomitant]
     Indication: SLEEP DISORDER
  7. OXYCODONE [Concomitant]
     Indication: PAIN
     Dosage: VARIES
  8. COMPAZINE [Concomitant]
     Indication: NAUSEA
  9. IMODIUM [Concomitant]
  10. MEGESTROL [Concomitant]
     Indication: APPETITE DISORDER

REACTIONS (4)
  - DEAFNESS [None]
  - EAR INFECTION [None]
  - NASAL CONGESTION [None]
  - RHINORRHOEA [None]
